FAERS Safety Report 6965134-6 (Version None)
Quarter: 2010Q3

REPORT INFORMATION
  Report Type: 
  Country: None (occurrence: None)
  Receive Date: 20100903
  Receipt Date: 20100824
  Transmission Date: 20110219
  Serious: Yes (Other)
  Sender: FDA-Public Use
  Company Number: US-PFIZER INC-2010062994

PATIENT
  Sex: Female

DRUGS (12)
  1. LYRICA [Suspect]
     Dosage: 25 MG, 3X/DAY
     Route: 048
     Dates: start: 20080201
  2. DETROL LA [Suspect]
     Dosage: UNK
  3. CELEBREX [Suspect]
     Dosage: UNK
  4. VITAMIN D [Concomitant]
  5. ATENOLOL [Concomitant]
  6. ASPIRIN [Concomitant]
  7. VITAMIN E [Concomitant]
  8. ZINC [Concomitant]
  9. ASCORBIC ACID [Concomitant]
  10. PROTONIX [Concomitant]
  11. FLEXERIL [Concomitant]
  12. CALCIUM WITH VITAMIN D [Concomitant]

REACTIONS (1)
  - ROTATOR CUFF SYNDROME [None]
